FAERS Safety Report 7101897-7 (Version None)
Quarter: 2010Q4

REPORT INFORMATION
  Report Type: 
  Country: None (occurrence: None)
  Receive Date: 20101109
  Receipt Date: 20101025
  Transmission Date: 20110411
  Serious: Yes (Other)
  Sender: FDA-Public Use
  Company Number: ACO_20043_2010

PATIENT
  Age: 59 Year
  Sex: Female

DRUGS (8)
  1. AMPYRA [Suspect]
     Indication: PRODUCT USED FOR UNKNOWN INDICATION
     Dosage: 10 MG, BID, ORAL
     Route: 048
     Dates: start: 20101001, end: 20101001
  2. LISINOPRIL [Concomitant]
  3. NORVASC [Concomitant]
  4. HYDROCHLOROTHIAZIDE [Concomitant]
  5. FENOFIBRATE [Concomitant]
  6. VITAMIN D [Concomitant]
  7. FISH OIL (FISH OIL) [Concomitant]
  8. PROZAC [Concomitant]

REACTIONS (6)
  - CONVULSION [None]
  - DISORIENTATION [None]
  - DIZZINESS [None]
  - SOMNOLENCE [None]
  - TREMOR [None]
  - VISUAL IMPAIRMENT [None]
